FAERS Safety Report 14979620 (Version 2)
Quarter: 2018Q2

REPORT INFORMATION
  Report Type: Spontaneous
  Country: US (occurrence: US)
  Receive Date: 20180606
  Receipt Date: 20180614
  Transmission Date: 20180711
  Serious: Yes (Death, Other)
  Sender: FDA-Public Use
  Company Number: US-FRESENIUS MEDICAL CARE RENAL THERAPIES GROUP-FMC-1806-001044

PATIENT
  Sex: Male
  Weight: 94 kg

DRUGS (9)
  1. DELFLEX WITH DEXTROSE 4.25% LOW MAGNESIUM LOW CALCIUM [Suspect]
     Active Substance: CALCIUM CHLORIDE\DEXTROSE\MAGNESIUM CHLORIDE\SODIUM CHLORIDE\SODIUM LACTATE
     Indication: END STAGE RENAL DISEASE
     Route: 033
     Dates: start: 20180123, end: 20180526
  2. SENSIPAR [Concomitant]
     Active Substance: CINACALCET HYDROCHLORIDE
  3. ACETAMINOPHEN. [Concomitant]
     Active Substance: ACETAMINOPHEN
  4. CARVEDILOL. [Concomitant]
     Active Substance: CARVEDILOL
  5. DELFLEX WITH DEXTROSE 1.5% LOW MAGNESIUM LOW CALCIUM [Suspect]
     Active Substance: CALCIUM CHLORIDE\DEXTROSE\MAGNESIUM CHLORIDE\SODIUM CHLORIDE\SODIUM LACTATE
     Indication: END STAGE RENAL DISEASE
     Route: 033
     Dates: start: 20180123, end: 20180526
  6. DELFLEX WITH DEXTROSE 2.5% LOW MAGNESIUM LOW CALCIUM [Suspect]
     Active Substance: CALCIUM CHLORIDE\DEXTROSE\MAGNESIUM CHLORIDE\SODIUM CHLORIDE\SODIUM LACTATE
     Indication: END STAGE RENAL DISEASE
     Route: 033
     Dates: start: 20180123, end: 20180526
  7. GENTAMICIN. [Concomitant]
     Active Substance: GENTAMICIN
  8. IBUPROFEN. [Concomitant]
     Active Substance: IBUPROFEN
  9. DICLOFENAC SODIUM. [Concomitant]
     Active Substance: DICLOFENAC SODIUM

REACTIONS (2)
  - Cardiac arrest [Fatal]
  - Peritonitis bacterial [Unknown]
